FAERS Safety Report 25561983 (Version 1)
Quarter: 2025Q3

REPORT INFORMATION
  Report Type: Spontaneous
  Country: IR (occurrence: IR)
  Receive Date: 20250716
  Receipt Date: 20250716
  Transmission Date: 20251020
  Serious: Yes (Death, Hospitalization, Other)
  Sender: PIRAMAL
  Company Number: IR-PIRAMAL CRITICAL CARE LIMITED-2025-PPL-000423

PATIENT

DRUGS (6)
  1. ISOFLURANE [Suspect]
     Active Substance: ISOFLURANE
     Indication: Maintenance of anaesthesia
  2. MIDAZOLAM [Suspect]
     Active Substance: MIDAZOLAM
     Indication: General anaesthesia
  3. FENTANYL [Suspect]
     Active Substance: FENTANYL
     Indication: General anaesthesia
  4. PROPOFOL [Suspect]
     Active Substance: PROPOFOL
     Indication: General anaesthesia
  5. LIDOCAINE [Suspect]
     Active Substance: LIDOCAINE
     Indication: General anaesthesia
  6. ATRACURIUM [Suspect]
     Active Substance: ATRACURIUM
     Indication: General anaesthesia

REACTIONS (3)
  - Hyperthermia malignant [Fatal]
  - Hyperkalaemia [Fatal]
  - Ventricular arrhythmia [Fatal]
